FAERS Safety Report 25362063 (Version 1)
Quarter: 2025Q2

REPORT INFORMATION
  Report Type: Report from Study
  Country: IE (occurrence: IE)
  Receive Date: 20250527
  Receipt Date: 20250527
  Transmission Date: 20250717
  Serious: Yes (Other)
  Sender: RANBAXY
  Company Number: IE-SUN PHARMACEUTICAL INDUSTRIES LTD-2025R1-508311

PATIENT
  Age: 17 Year

DRUGS (1)
  1. ALBUTEROL [Suspect]
     Active Substance: ALBUTEROL
     Indication: Myasthenia gravis neonatal
     Route: 048

REACTIONS (3)
  - Chronic respiratory failure [Unknown]
  - Drug ineffective [Unknown]
  - Tachycardia [Unknown]
